FAERS Safety Report 9825280 (Version 3)
Quarter: 2014Q1

REPORT INFORMATION
  Report Type: Report from Study
  Country: FR (occurrence: FR)
  Receive Date: 20140117
  Receipt Date: 20140130
  Transmission Date: 20141002
  Serious: Yes (Hospitalization, Other)
  Sender: FDA-Public Use
  Company Number: FR-ROCHE-1164263

PATIENT
  Age: 66 Year
  Sex: Male

DRUGS (34)
  1. RITUXIMAB [Suspect]
     Indication: RHEUMATOID ARTHRITIS
     Route: 041
     Dates: start: 20080704
  2. RITUXIMAB [Suspect]
     Route: 041
     Dates: start: 20080718
  3. RITUXIMAB [Suspect]
     Route: 041
     Dates: start: 20090202
  4. RITUXIMAB [Suspect]
     Route: 041
     Dates: start: 20090217
  5. RITUXIMAB [Suspect]
     Route: 041
     Dates: start: 20090723
  6. RITUXIMAB [Suspect]
     Route: 041
     Dates: start: 20090806
  7. RITUXIMAB [Suspect]
     Route: 041
     Dates: start: 20100208
  8. RITUXIMAB [Suspect]
     Route: 041
     Dates: start: 20100222
  9. RITUXIMAB [Suspect]
     Route: 041
     Dates: start: 20100813
  10. RITUXIMAB [Suspect]
     Route: 041
     Dates: start: 20100830
  11. RITUXIMAB [Suspect]
     Route: 041
     Dates: start: 20110203
  12. RITUXIMAB [Suspect]
     Route: 041
     Dates: start: 20110217
  13. RITUXIMAB [Suspect]
     Route: 041
     Dates: start: 20110712
  14. RITUXIMAB [Suspect]
     Route: 041
     Dates: start: 20110728
  15. RITUXIMAB [Suspect]
     Route: 041
     Dates: start: 20120106
  16. RITUXIMAB [Suspect]
     Route: 041
     Dates: start: 20130304
  17. RITUXIMAB [Suspect]
     Route: 041
     Dates: start: 20130322
  18. SALAZOPYRINE [Concomitant]
     Route: 065
     Dates: start: 20080718
  19. PLAQUENIL [Concomitant]
     Route: 065
     Dates: start: 20080718
  20. LEFLUNOMIDE [Concomitant]
     Route: 065
     Dates: start: 20090217
  21. LEFLUNOMIDE [Concomitant]
     Route: 065
     Dates: start: 20090806
  22. LEFLUNOMIDE [Concomitant]
     Route: 065
     Dates: start: 20100222
  23. LEFLUNOMIDE [Concomitant]
     Route: 065
     Dates: start: 20100830
  24. LEFLUNOMIDE [Concomitant]
     Route: 065
     Dates: start: 20110217
  25. LEFLUNOMIDE [Concomitant]
     Route: 065
     Dates: start: 20110728
  26. LEFLUNOMIDE [Concomitant]
     Route: 065
     Dates: start: 20120106
  27. LEFLUNOMIDE [Concomitant]
     Route: 065
     Dates: start: 20130322
  28. CORTANCYL [Concomitant]
     Route: 065
     Dates: start: 20090806
  29. CORTANCYL [Concomitant]
     Route: 065
     Dates: start: 20100222
  30. CORTANCYL [Concomitant]
     Route: 065
     Dates: start: 20100830
  31. CORTANCYL [Concomitant]
     Route: 065
     Dates: start: 20110217
  32. CORTANCYL [Concomitant]
     Route: 065
     Dates: start: 20110728
  33. CORTANCYL [Concomitant]
     Route: 065
     Dates: start: 20120106
  34. CORTANCYL [Concomitant]
     Route: 065
     Dates: start: 20130322

REACTIONS (5)
  - Bronchopneumonia [Recovered/Resolved]
  - Pneumonia [Recovered/Resolved]
  - Diabetes mellitus [Not Recovered/Not Resolved]
  - Psoriasis [Not Recovered/Not Resolved]
  - Tracheobronchitis [Recovered/Resolved]
